FAERS Safety Report 6237914-6 (Version None)
Quarter: 2009Q2

REPORT INFORMATION
  Report Type: 
  Country: None (occurrence: None)
  Receive Date: 20090621
  Receipt Date: 20090610
  Transmission Date: 20091009
  Serious: Yes (Other)
  Sender: FDA-Public Use
  Company Number: PHHY2009CA23248

PATIENT
  Sex: Male

DRUGS (1)
  1. COMTAN [Suspect]
     Dosage: 200 MG, 5QD
     Route: 048

REACTIONS (3)
  - DROOLING [None]
  - FACIAL PALSY [None]
  - FREEZING PHENOMENON [None]
